FAERS Safety Report 4280397-6 (Version None)
Quarter: 2004Q1

REPORT INFORMATION
  Report Type: 
  Country: None (occurrence: None)
  Receive Date: 20040127
  Receipt Date: 20040126
  Transmission Date: 20041129
  Serious: No
  Sender: FDA-Public Use
  Company Number: 2003157664GB

PATIENT
  Age: 50 Year
  Sex: Male

DRUGS (6)
  1. CISPLATIN [Suspect]
     Indication: LYMPHADENOPATHY
     Dosage: 33 MG/M2, CYCLIC, DAY 1, IV
     Route: 042
     Dates: start: 20000101, end: 20000101
  2. CYTOSAR-U [Suspect]
     Indication: LYMPHADENOPATHY
     Dosage: 2000 MG/M2, CYCLIC, DAY 1,
     Dates: start: 20000101
  3. DEXAMETHASONE [Suspect]
     Indication: LYMPHADENOPATHY
     Dosage: 40 UG, CYCLE 1, QD X 4 DAYS, ORAL
     Route: 048
     Dates: start: 20000101, end: 20000101
  4. CCNU [Concomitant]
  5. ETOPOSIDE [Concomitant]
  6. CYCLOPHOSPHAMIDE [Concomitant]

REACTIONS (7)
  - COELIAC DISEASE [None]
  - LOWER RESPIRATORY TRACT INFECTION [None]
  - METABOLIC ACIDOSIS [None]
  - PNEUMONIA [None]
  - STEM CELL TRANSPLANT [None]
  - STOOLS WATERY [None]
  - WEIGHT DECREASED [None]
